FAERS Safety Report 21341358 (Version 1)
Quarter: 2022Q3

REPORT INFORMATION
  Report Type: Spontaneous
  Country: US (occurrence: US)
  Receive Date: 20220916
  Receipt Date: 20220916
  Transmission Date: 20221026
  Serious: Yes (Death, Hospitalization, Other)
  Sender: FDA-Public Use
  Company Number: US-SPECGX-T202201970

PATIENT
  Sex: Male

DRUGS (1)
  1. EXALGO [Suspect]
     Active Substance: HYDROMORPHONE HYDROCHLORIDE
     Indication: Product used for unknown indication
     Dosage: UNK
     Route: 065

REACTIONS (15)
  - Death [Fatal]
  - Hospitalisation [Unknown]
  - Brain oedema [Unknown]
  - Suicide attempt [Unknown]
  - Pain [Unknown]
  - Illness [Unknown]
  - Emotional distress [Unknown]
  - Haematoma [Unknown]
  - Liver disorder [Unknown]
  - Renal disorder [Unknown]
  - Memory impairment [Unknown]
  - Fatigue [Unknown]
  - Depression [Unknown]
  - Anxiety [Unknown]
  - Asthenia [Unknown]
